FAERS Safety Report 23235083 (Version 1)
Quarter: 2023Q4

REPORT INFORMATION
  Report Type: Spontaneous
  Country: CN (occurrence: CN)
  Receive Date: 20231128
  Receipt Date: 20231128
  Transmission Date: 20240110
  Serious: Yes (Hospitalization, Other)
  Sender: FDA-Public Use
  Company Number: CN-PFIZER INC-PV202300191880

PATIENT
  Age: 8 Year
  Sex: Male
  Weight: 22 kg

DRUGS (2)
  1. METHOTREXATE SODIUM [Suspect]
     Active Substance: METHOTREXATE SODIUM
     Indication: Burkitt^s lymphoma
     Dosage: 4 G, 1X/DAY
     Route: 041
     Dates: start: 20231030, end: 20231030
  2. DEXTROSE [Concomitant]
     Active Substance: DEXTROSE\DEXTROSE MONOHYDRATE
     Indication: Vehicle solution use
     Dosage: 400 ML, 1X/DAY
     Route: 041
     Dates: start: 20231030, end: 20231030

REACTIONS (3)
  - Myelosuppression [Recovering/Resolving]
  - Mouth ulceration [Recovering/Resolving]
  - Oral mucosal erythema [Unknown]

NARRATIVE: CASE EVENT DATE: 20231107
